FAERS Safety Report 7539865-3 (Version None)
Quarter: 2011Q2

REPORT INFORMATION
  Report Type: 
  Country: None (occurrence: None)
  Receive Date: 20110610
  Receipt Date: 20110526
  Transmission Date: 20111010
  Serious: Yes (Hospitalization)
  Sender: FDA-Public Use
  Company Number: US-BAYER-201018558NA

PATIENT
  Age: 28 Year
  Sex: Female

DRUGS (6)
  1. PERCOCET [Concomitant]
  2. ADVIL LIQUI-GELS [Concomitant]
     Dosage: UNK
     Dates: start: 19970101
  3. YAZ [Suspect]
     Indication: PRODUCT USED FOR UNKNOWN INDICATION
     Route: 048
  4. DROSPIRENONE AND ETHINYL ESTRADIOL [Suspect]
     Dosage: UNK
     Dates: start: 20080701, end: 20090201
  5. YASMIN [Suspect]
     Indication: PRODUCT USED FOR UNKNOWN INDICATION
     Dosage: UNK UNK, UNK
     Route: 048
     Dates: start: 20050101, end: 20090201
  6. ZELNORM [Concomitant]

REACTIONS (3)
  - CHOLELITHIASIS [None]
  - ABDOMINAL PAIN UPPER [None]
  - CHOLECYSTITIS CHRONIC [None]
